FAERS Safety Report 15666448 (Version 1)
Quarter: 2018Q4

REPORT INFORMATION
  Report Type: Spontaneous
  Country: US (occurrence: US)
  Receive Date: 20181128
  Receipt Date: 20181128
  Transmission Date: 20190205
  Serious: Yes (Other)
  Sender: FDA-Public Use
  Company Number: None

PATIENT
  Age: 46 Year
  Sex: Female
  Weight: 100 kg

DRUGS (4)
  1. IBUPROFEN 600MG [Concomitant]
     Active Substance: IBUPROFEN
  2. BENADRYL 50MG [Concomitant]
  3. D5W 500ML [Concomitant]
  4. GAMUNEX-C [Suspect]
     Active Substance: HUMAN IMMUNOGLOBULIN G
     Indication: CHRONIC INFLAMMATORY DEMYELINATING POLYRADICULONEUROPATHY
     Dosage: ?          OTHER FREQUENCY:EVERY 4 WEEKS;?
     Route: 042
     Dates: start: 20181126

REACTIONS (3)
  - Pruritus generalised [None]
  - Rash [None]
  - Hyperhidrosis [None]

NARRATIVE: CASE EVENT DATE: 20181126
